FAERS Safety Report 10528243 (Version 2)
Quarter: 2015Q2

REPORT INFORMATION
  Report Type: Spontaneous
  Country: GB (occurrence: GB)
  Receive Date: 20141020
  Receipt Date: 20150526
  Transmission Date: 20150821
  Serious: Yes (Hospitalization, Other)
  Sender: FDA-Public Use
  Company Number: GB-GLAXOSMITHKLINE-GB2014002311

PATIENT

DRUGS (9)
  1. DEXAMETHASONE. [Suspect]
     Active Substance: DEXAMETHASONE
     Indication: GASTRIC CANCER
     Dosage: DATE OF LAST DOSE: 09/MAR/2012
     Route: 048
     Dates: start: 20120124, end: 20120309
  2. FUROSEMIDE. [Suspect]
     Active Substance: FUROSEMIDE
     Indication: GASTRIC CANCER
     Dosage: DATE OF LAST DOSE: 06/MAR/2012
     Route: 048
     Dates: start: 20120124
  3. XELODA [Suspect]
     Active Substance: CAPECITABINE
     Indication: GASTRIC CANCER
     Dosage: DATE OF MOST RECENT ADMINISTRATION: 27/MAR/2012
     Route: 048
     Dates: start: 20120124
  4. AVASTIN [Suspect]
     Active Substance: BEVACIZUMAB
     Indication: GASTRIC CANCER
     Dosage: DATE OF MOST RECENT ADMINISTRATION: 06/MAR/2012
     Route: 042
     Dates: start: 20120124
  5. APREPITANT. [Suspect]
     Active Substance: APREPITANT
     Indication: GASTRIC CANCER
     Dosage: DATE OF LAST DOSE: 06/MAR/2012
     Route: 048
     Dates: start: 20120124
  6. CISPLATIN. [Suspect]
     Active Substance: CISPLATIN
     Indication: GASTRIC CANCER
     Dosage: DATE OF MOST RECENT ADMINISTRATION: 06/MAR/2012
     Route: 042
     Dates: start: 20120124
  7. EPIRUBICIN [Suspect]
     Active Substance: EPIRUBICIN
     Indication: GASTRIC CANCER
     Dosage: DATE OF MOST RECENT ADMINISTRATION: 06/MAR/2012
     Route: 042
     Dates: start: 20120124
  8. LISINOPRIL. [Concomitant]
     Active Substance: LISINOPRIL
     Route: 065
     Dates: start: 200705
  9. ONDANSETRON [Suspect]
     Active Substance: ONDANSETRON
     Indication: GASTRIC CANCER
     Dosage: DATE OF LAST DOSE: 09/MAR/2012
     Route: 048
     Dates: start: 20120124

REACTIONS (4)
  - Vomiting [Recovered/Resolved]
  - Abdominal sepsis [Recovered/Resolved]
  - Diarrhoea [Recovered/Resolved]
  - Febrile neutropenia [Recovered/Resolved]

NARRATIVE: CASE EVENT DATE: 20120313
